FAERS Safety Report 10025169 (Version 1)
Quarter: 2014Q1

REPORT INFORMATION
  Report Type: Spontaneous
  Country: DK (occurrence: IT)
  Receive Date: 20140320
  Receipt Date: 20140320
  Transmission Date: 20141002
  Serious: Yes (Hospitalization)
  Sender: FDA-Public Use
  Company Number: IT-FRI-1000064769

PATIENT
  Age: 36 Year
  Sex: Female

DRUGS (3)
  1. ESCITALOPRAM ORAL SOLUTION [Suspect]
     Indication: DEPRESSION
     Dosage: 10-15 DROPS DAILY
     Route: 048
  2. ESCITALOPRAM ORAL SOLUTION [Suspect]
     Dosage: OVERDOSE: 15 ML
     Route: 048
     Dates: start: 20140207, end: 20140207
  3. TACHIFLUDEC [Suspect]
     Indication: INFLUENZA
     Dates: start: 20140207, end: 20140207

REACTIONS (4)
  - Drug abuse [Recovered/Resolved]
  - Vomiting [Recovered/Resolved]
  - Sopor [Recovered/Resolved]
  - Intentional overdose [Recovered/Resolved]
